FAERS Safety Report 4346779-9 (Version None)
Quarter: 2004Q1

REPORT INFORMATION
  Report Type: 
  Country: None (occurrence: None)
  Receive Date: 20040325
  Receipt Date: 20031222
  Transmission Date: 20041129
  Serious: No
  Sender: FDA-Public Use
  Company Number: USA030740662

PATIENT
  Age: 79 Year
  Sex: Female

DRUGS (6)
  1. FORTEO [Suspect]
     Indication: OSTEOPOROSIS
     Dosage: 20 UG/DAY
     Dates: start: 20030627
  2. FOSAMAX [Concomitant]
  3. TENORMIN [Concomitant]
  4. CELEXA [Concomitant]
  5. MULTIVITAMIN [Concomitant]
  6. ASPIRIN [Concomitant]

REACTIONS (3)
  - ACCIDENTAL NEEDLE STICK [None]
  - HAEMORRHAGE [None]
  - INJECTION SITE HAEMORRHAGE [None]
